FAERS Safety Report 9657319 (Version 1)
Quarter: 2013Q4

REPORT INFORMATION
  Report Type: Spontaneous
  Country: US (occurrence: US)
  Receive Date: 20131030
  Receipt Date: 20131030
  Transmission Date: 20140711
  Serious: Yes (Hospitalization)
  Sender: FDA-Public Use
  Company Number: US-GLAXOSMITHKLINE-A1047144A

PATIENT
  Age: 51 Year
  Sex: Male

DRUGS (4)
  1. LOVAZA [Suspect]
     Indication: BLOOD TRIGLYCERIDES INCREASED
     Dosage: 2CAP TWICE PER DAY
     Route: 048
     Dates: start: 2013
  2. LEVOTHYROXINE [Concomitant]
  3. ALLOPURINOL [Concomitant]
  4. ASPIRIN [Concomitant]

REACTIONS (3)
  - Thyroid cancer [Unknown]
  - Fatigue [Unknown]
  - Thyroidectomy [Unknown]
